FAERS Safety Report 9716893 (Version 2)
Quarter: 2015Q3

REPORT INFORMATION
  Report Type: Spontaneous
  Country: US (occurrence: US)
  Receive Date: 20131127
  Receipt Date: 20150803
  Transmission Date: 20151125
  Serious: No
  Sender: FDA-Public Use
  Company Number: US-GILEAD-2009-0019896

PATIENT
  Age: 76 Year
  Sex: Female
  Weight: 58.97 kg

DRUGS (12)
  1. ALBUTEROL. [Concomitant]
     Active Substance: ALBUTEROL
  2. LOVASTATIN. [Concomitant]
     Active Substance: LOVASTATIN
  3. ADVAIR HFA [Concomitant]
     Active Substance: FLUTICASONE PROPIONATE\SALMETEROL XINAFOATE
  4. SYNTHROID [Concomitant]
     Active Substance: LEVOTHYROXINE SODIUM
  5. CENTRUM [Concomitant]
     Active Substance: VITAMINS
  6. BONIVA [Concomitant]
     Active Substance: IBANDRONATE SODIUM
  7. PREDNISONE. [Concomitant]
     Active Substance: PREDNISONE
  8. LETAIRIS [Suspect]
     Active Substance: AMBRISENTAN
     Indication: PULMONARY ARTERIAL HYPERTENSION
     Route: 048
     Dates: start: 20081203
  9. CALCIUM [Concomitant]
     Active Substance: CALCIUM
  10. LETAIRIS [Suspect]
     Active Substance: AMBRISENTAN
     Route: 048
  11. XANAX [Concomitant]
     Active Substance: ALPRAZOLAM
  12. OXYGEN. [Concomitant]
     Active Substance: OXYGEN

REACTIONS (2)
  - Drug ineffective [Unknown]
  - Dyspnoea [Unknown]

NARRATIVE: CASE EVENT DATE: 20081203
